FAERS Safety Report 12931459 (Version 1)
Quarter: 2016Q4

REPORT INFORMATION
  Report Type: Spontaneous
  Country: PT (occurrence: PT)
  Receive Date: 20161110
  Receipt Date: 20161110
  Transmission Date: 20170207
  Serious: Yes (Other)
  Sender: FDA-Public Use
  Company Number: PT-JNJFOC-20161101857

PATIENT

DRUGS (1)
  1. INFLIXIMAB, RECOMBINANT [Suspect]
     Active Substance: INFLIXIMAB
     Indication: INFLAMMATORY BOWEL DISEASE
     Route: 042

REACTIONS (9)
  - Neoplasm [Unknown]
  - Bacterial infection [Unknown]
  - Infection [Unknown]
  - Eczema [Unknown]
  - Dermatitis psoriasiform [Unknown]
  - Injection site reaction [Unknown]
  - Fungal infection [Unknown]
  - Vasculitis [Unknown]
  - Skin cancer [Unknown]
